FAERS Safety Report 4589501-3 (Version None)
Quarter: 2005Q1

REPORT INFORMATION
  Report Type: 
  Country: None (occurrence: None)
  Receive Date: 20050216
  Receipt Date: 20050208
  Transmission Date: 20050727
  Serious: Yes (Life-Threatening, Other)
  Sender: FDA-Public Use
  Company Number: 028-20785-03080642

PATIENT
  Age: 50 Year
  Sex: Female

DRUGS (12)
  1. THALOMID [Suspect]
     Indication: MULTIPLE MYELOMA
     Dosage: SEE IMAGE
     Route: 048
     Dates: end: 20010101
  2. THALOMID [Suspect]
     Indication: MULTIPLE MYELOMA
     Dosage: SEE IMAGE
     Route: 048
     Dates: start: 20030801, end: 20040801
  3. THALOMID [Suspect]
     Indication: MULTIPLE MYELOMA
     Dosage: SEE IMAGE
     Route: 048
     Dates: start: 19991201
  4. THALOMID [Suspect]
     Indication: MULTIPLE MYELOMA
     Dosage: SEE IMAGE
     Route: 048
     Dates: start: 20010501
  5. PAMIDRONATE DISODIUM [Concomitant]
  6. HYDROMOPRHONE CONTIN [Concomitant]
  7. SENOKOT [Concomitant]
  8. COLACE (DOCUSATE SODIUM) [Concomitant]
  9. LACTULOSE [Concomitant]
  10. PREDNISONE [Concomitant]
  11. COUMADIN [Concomitant]
  12. EPREX [Concomitant]

REACTIONS (7)
  - DRY SKIN [None]
  - EPITHELIOMA [None]
  - HEADACHE [None]
  - LIP AND/OR ORAL CAVITY CANCER [None]
  - MASS [None]
  - PAIN [None]
  - PULMONARY EMBOLISM [None]
